FAERS Safety Report 10186244 (Version 3)
Quarter: 2014Q2

REPORT INFORMATION
  Report Type: Spontaneous
  Country: JP (occurrence: JP)
  Receive Date: 20140521
  Receipt Date: 20140623
  Transmission Date: 20141212
  Serious: Yes (Other)
  Sender: FDA-Public Use
  Company Number: JP-GLAXOSMITHKLINE-B0994838A

PATIENT
  Age: 80 Year
  Sex: Male

DRUGS (2)
  1. VOTRIENT 200MG [Suspect]
     Indication: RENAL CELL CARCINOMA
     Dosage: 800MG PER DAY
     Route: 048
     Dates: start: 20140421
  2. VOTRIENT 200MG [Suspect]
     Indication: RENAL CELL CARCINOMA
     Dosage: 400MG PER DAY
     Route: 048

REACTIONS (5)
  - Pancreatitis acute [Recovered/Resolved]
  - Platelet count decreased [Recovered/Resolved]
  - Amylase increased [Recovered/Resolved]
  - Haematuria [Recovered/Resolved]
  - Dysgeusia [Recovered/Resolved]
